FAERS Safety Report 5504841-9 (Version None)
Quarter: 2007Q4

REPORT INFORMATION
  Report Type: 
  Country: None (occurrence: None)
  Receive Date: 20071102
  Receipt Date: 20071024
  Transmission Date: 20080405
  Serious: Yes (Hospitalization)
  Sender: FDA-Public Use
  Company Number: PHBS2007JP17846

PATIENT
  Age: 41 Year

DRUGS (5)
  1. TEGRETOL [Suspect]
  2. PEROSPIRONE HYDROCHLORIDE [Suspect]
     Dosage: 8 MG/DAY
  3. CLOMIPRAMINE HYDROCHLORIDE [Suspect]
     Dosage: 50 MG/DAY
  4. VALPROATE SODIUM [Concomitant]
     Dosage: 600 MG/DAY
  5. TEPRENONE [Concomitant]
     Dosage: 150 MG/D

REACTIONS (13)
  - ANOREXIA [None]
  - ARTHRALGIA [None]
  - BIOPSY KIDNEY ABNORMAL [None]
  - BLOOD CREATININE INCREASED [None]
  - C-REACTIVE PROTEIN INCREASED [None]
  - DIARRHOEA [None]
  - EOSINOPHILIA [None]
  - HAEMODIALYSIS [None]
  - NEPHRITIS INTERSTITIAL [None]
  - OLIGURIA [None]
  - PYREXIA [None]
  - RENAL ATROPHY [None]
  - RENAL FAILURE [None]
